FAERS Safety Report 5807478-7 (Version None)
Quarter: 2008Q3

REPORT INFORMATION
  Report Type: 
  Country: None (occurrence: None)
  Receive Date: 20080709
  Receipt Date: 20080709
  Transmission Date: 20090109
  Serious: Yes (Other)
  Sender: FDA-Public Use
  Company Number: None

PATIENT
  Age: 66 Year
  Sex: Male
  Weight: 95 kg

DRUGS (1)
  1. COLISTIMETHATE [Suspect]
     Dosage: 150 MG TID IV
     Route: 042
     Dates: start: 20080402, end: 20080406

REACTIONS (1)
  - RENAL FAILURE ACUTE [None]
